FAERS Safety Report 6652695-X (Version None)
Quarter: 2010Q1

REPORT INFORMATION
  Report Type: 
  Country: None (occurrence: None)
  Receive Date: 20100326
  Receipt Date: 20100318
  Transmission Date: 20100710
  Serious: Yes (Hospitalization, Other)
  Sender: FDA-Public Use
  Company Number: JP-ABBOTT-10P-087-0618017-00

PATIENT
  Sex: Female
  Weight: 52 kg

DRUGS (18)
  1. HUMIRA [Suspect]
     Indication: RHEUMATOID ARTHRITIS
     Route: 058
     Dates: start: 20091224, end: 20091224
  2. TACROLIMUS [Suspect]
     Indication: RHEUMATOID ARTHRITIS
     Route: 048
     Dates: start: 20090303, end: 20100107
  3. METHOTREXATE [Suspect]
     Indication: RHEUMATOID ARTHRITIS
     Route: 048
     Dates: start: 20091223, end: 20091229
  4. METHOTREXATE [Suspect]
     Dates: start: 20091101
  5. METHYLPREDNISOLONE [Suspect]
     Indication: RHEUMATOID ARTHRITIS
     Route: 048
     Dates: start: 20090717
  6. FOLIC ACID [Concomitant]
     Indication: RHEUMATOID ARTHRITIS
     Route: 048
     Dates: start: 20091225, end: 20100101
  7. FOLIC ACID [Concomitant]
     Indication: DISEASE COMPLICATION
  8. FOLIC ACID [Concomitant]
     Indication: PROPHYLAXIS
  9. ALENDRONATE SODIUM [Concomitant]
     Indication: OSTEOPOROSIS
     Route: 048
     Dates: end: 20100106
  10. ALENDRONATE SODIUM [Concomitant]
     Indication: PROPHYLAXIS
  11. ALENDRONATE SODIUM [Concomitant]
     Indication: DISEASE COMPLICATION
  12. URSODEOXYCHOLIC ACID [Concomitant]
     Indication: LIVER DISORDER
     Route: 048
     Dates: start: 20080926
  13. PRAVASTATIN SODIUM [Concomitant]
     Indication: HYPERLIPIDAEMIA
     Dates: start: 20090616, end: 20100106
  14. LOXOPROFEN SODIUM HYDRATE [Concomitant]
     Indication: RHEUMATOID ARTHRITIS
     Dates: start: 20081009
  15. ZOLPIDEM TARTRATE [Concomitant]
     Indication: INSOMNIA
     Dates: start: 20090324
  16. REBAMIPIDE [Concomitant]
     Indication: GASTRITIS
  17. TACROLIMUS [Concomitant]
     Indication: DRUG USE FOR UNKNOWN INDICATION
     Dates: end: 20100106
  18. METHYLPREDNISOLONE [Concomitant]
     Indication: DRUG USE FOR UNKNOWN INDICATION

REACTIONS (7)
  - ARTHRALGIA [None]
  - DEHYDRATION [None]
  - DISSEMINATED INTRAVASCULAR COAGULATION [None]
  - INFECTION [None]
  - MALNUTRITION [None]
  - PAIN [None]
  - SHOCK [None]
